FAERS Safety Report 7030423-6 (Version None)
Quarter: 2010Q4

REPORT INFORMATION
  Report Type: 
  Country: None (occurrence: None)
  Receive Date: 20101001
  Receipt Date: 20100928
  Transmission Date: 20110411
  Serious: Yes (Life-Threatening, Hospitalization, Disabling, Other)
  Sender: FDA-Public Use
  Company Number: 2010SP038122

PATIENT
  Age: 77 Year
  Sex: Male
  Weight: 65 kg

DRUGS (8)
  1. TEMODAL [Suspect]
     Indication: ANAPLASTIC ASTROCYTOMA
     Dosage: 75 MG/M2 QD PO; 150 MG/M2 QD PO
     Route: 048
     Dates: start: 20100308, end: 20100419
  2. TEMODAL [Suspect]
     Indication: ANAPLASTIC ASTROCYTOMA
     Dosage: 75 MG/M2 QD PO; 150 MG/M2 QD PO
     Route: 048
     Dates: start: 20100519, end: 20100521
  3. GASPORT-D (FAMOTIDINE) [Concomitant]
  4. DIOVAN [Concomitant]
  5. LASIX [Concomitant]
  6. DOXAZOSIN MESYLATE [Concomitant]
  7. BAKTAR [Concomitant]
  8. MAGNESIUM OXIDE [Concomitant]

REACTIONS (4)
  - CEREBRAL INFARCTION [None]
  - DECREASED APPETITE [None]
  - DRUG INEFFECTIVE [None]
  - INTERSTITIAL LUNG DISEASE [None]
